FAERS Safety Report 8523922-9 (Version None)
Quarter: 2012Q3

REPORT INFORMATION
  Report Type: 
  Country: None (occurrence: None)
  Receive Date: 20120720
  Receipt Date: 20120713
  Transmission Date: 20120928
  Serious: Yes (Other)
  Sender: FDA-Public Use
  Company Number: US-BRISTOL-MYERS SQUIBB COMPANY-16766412

PATIENT
  Age: 60 Year
  Sex: Male

DRUGS (12)
  1. EPOGEN [Concomitant]
  2. MOTRIN [Concomitant]
  3. TYLENOL [Concomitant]
  4. ASPIRIN [Concomitant]
  5. INVEGA [Suspect]
  6. HALOPERIDOL [Suspect]
  7. SODIUM POLYSTYRENE SULFONATE [Concomitant]
  8. ABILIFY [Suspect]
     Indication: SCHIZOPHRENIA
  9. KETOCONAZOLE [Concomitant]
  10. CALCIUM ACETATE [Concomitant]
  11. ATIVAN [Concomitant]
  12. GEODON [Concomitant]

REACTIONS (2)
  - RENAL IMPAIRMENT [None]
  - SCHIZOPHRENIA [None]
